FAERS Safety Report 16021671 (Version 1)
Quarter: 2019Q1

REPORT INFORMATION
  Report Type: Spontaneous
  Country: FR (occurrence: FR)
  Receive Date: 20190301
  Receipt Date: 20190301
  Transmission Date: 20190418
  Serious: Yes (Hospitalization)
  Sender: FDA-Public Use
  Company Number: FR-ACCORD-109767

PATIENT
  Age: 18 Year
  Sex: Female
  Weight: 83 kg

DRUGS (5)
  1. LEVETIRACETAM ACCORD [Suspect]
     Active Substance: LEVETIRACETAM
     Indication: SEIZURE
     Dosage: 500 MG, FILM-COATED TABLETS
     Route: 048
     Dates: start: 20180727, end: 20180806
  2. CEFOTAXIME [Suspect]
     Active Substance: CEFOTAXIME SODIUM
     Indication: MENINGITIS
     Dosage: 1 G, POWDER FOR SOLUTION FOR INJECTION (IM-IV)
     Route: 042
     Dates: start: 20180726, end: 20180807
  3. CETIRIZINE/CETIRIZINE HYDROCHLORIDE [Concomitant]
  4. URBANYL [Concomitant]
     Active Substance: CLOBAZAM
  5. EUPANTOL [Concomitant]
     Active Substance: PANTOPRAZOLE SODIUM

REACTIONS (5)
  - Pruritus [Recovered/Resolved]
  - Lymphopenia [Recovered/Resolved]
  - Leukopenia [Recovering/Resolving]
  - Rash erythematous [Recovered/Resolved]
  - Neutropenia [Recovered/Resolved]

NARRATIVE: CASE EVENT DATE: 20180804
